FAERS Safety Report 15048798 (Version 1)
Quarter: 2018Q2

REPORT INFORMATION
  Report Type: Spontaneous
  Country: US (occurrence: US)
  Receive Date: 20180622
  Receipt Date: 20180622
  Transmission Date: 20180711
  Serious: No
  Sender: FDA-Public Use
  Company Number: US-PFIZER INC-2018251092

PATIENT
  Sex: Female

DRUGS (1)
  1. ADVIL [Suspect]
     Active Substance: IBUPROFEN
     Indication: PAIN
     Dosage: 200 MG, UNK

REACTIONS (6)
  - Pharyngeal oedema [Unknown]
  - Pyrexia [Unknown]
  - Feeling abnormal [Unknown]
  - Dysphagia [Unknown]
  - Product use complaint [Unknown]
  - Intentional product misuse [Unknown]
